FAERS Safety Report 4613946-6 (Version None)
Quarter: 2005Q1

REPORT INFORMATION
  Report Type: 
  Country: None (occurrence: None)
  Receive Date: 20050321
  Receipt Date: 20050308
  Transmission Date: 20050727
  Serious: Yes (Hospitalization)
  Sender: FDA-Public Use
  Company Number: NL-JNJFOC-20050303852

PATIENT
  Sex: Female

DRUGS (3)
  1. TRAMAL RETARD [Suspect]
     Indication: PAIN
     Route: 049
  2. COZAAR [Concomitant]
     Route: 049
  3. ACIDUM ACETYLSALICYLICUM CARDIO [Concomitant]
     Route: 049

REACTIONS (1)
  - LOSS OF CONSCIOUSNESS [None]
